FAERS Safety Report 23972900 (Version 5)
Quarter: 2025Q1

REPORT INFORMATION
  Report Type: Spontaneous
  Country: JP (occurrence: JP)
  Receive Date: 20240613
  Receipt Date: 20250127
  Transmission Date: 20250408
  Serious: Yes (Death, Hospitalization, Disabling, Other)
  Sender: BAYER HEALTHCARE PHARMACEUTICALS INC.
  Company Number: JP-BAYER-2024A059994

PATIENT
  Age: 74 Year
  Sex: Male
  Weight: 45.3 kg

DRUGS (3)
  1. NUBEQA [Suspect]
     Active Substance: DAROLUTAMIDE
     Indication: Hormone-dependent prostate cancer
     Dates: start: 20231005, end: 20240401
  2. DOCETAXEL [Suspect]
     Active Substance: DOCETAXEL
     Indication: Hormone-dependent prostate cancer
     Dates: start: 20231107, end: 20240131
  3. DEGARELIX ACETATE [Concomitant]
     Active Substance: DEGARELIX ACETATE
     Indication: Hormone-dependent prostate cancer
     Dates: start: 20230925, end: 20240125

REACTIONS (10)
  - Dysphagia [Fatal]
  - Mediastinum neoplasm [Fatal]
  - Pneumonia aspiration [Fatal]
  - Fatigue [Unknown]
  - Paralysis recurrent laryngeal nerve [None]
  - Eating disorder [None]
  - Renin decreased [None]
  - Blood aldosterone decreased [None]
  - Dysphonia [None]
  - Malaise [Recovered/Resolved]

NARRATIVE: CASE EVENT DATE: 20231101
